FAERS Safety Report 11488966 (Version 1)
Quarter: 2015Q3

REPORT INFORMATION
  Report Type: Spontaneous
  Country: US (occurrence: US)
  Receive Date: 20150910
  Receipt Date: 20150910
  Transmission Date: 20151125
  Serious: No
  Sender: FDA-Public Use
  Company Number: US-ROCHE-1450232

PATIENT
  Sex: Female

DRUGS (1)
  1. PEGASYS [Suspect]
     Active Substance: PEGINTERFERON ALFA-2A
     Indication: TRANSPLANT
     Route: 058
     Dates: start: 20131213

REACTIONS (2)
  - Abdominal pain upper [Unknown]
  - Rhinorrhoea [Unknown]
